FAERS Safety Report 21284450 (Version 1)
Quarter: 2022Q3

REPORT INFORMATION
  Report Type: Report from Study
  Country: US (occurrence: US)
  Receive Date: 20220902
  Receipt Date: 20220902
  Transmission Date: 20221026
  Serious: Yes (Hospitalization)
  Sender: FDA-Public Use
  Company Number: US-AMGEN-USASP2022149669

PATIENT
  Age: 40 Year
  Sex: Female

DRUGS (2)
  1. CORLANOR [Suspect]
     Active Substance: IVABRADINE HYDROCHLORIDE
     Indication: Tachycardia
     Dosage: 5 MILLIGRAM, BID
     Route: 048
     Dates: start: 2022
  2. CORLANOR [Suspect]
     Active Substance: IVABRADINE HYDROCHLORIDE
     Indication: Cardiac disorder
     Dosage: 2.5 MILLIGRAM, BID
     Route: 048
     Dates: start: 2022

REACTIONS (2)
  - Heart rate irregular [Unknown]
  - Off label use [Unknown]

NARRATIVE: CASE EVENT DATE: 20220101
